FAERS Safety Report 8049903-X (Version None)
Quarter: 2012Q1

REPORT INFORMATION
  Report Type: 
  Country: None (occurrence: None)
  Receive Date: 20120117
  Receipt Date: 20120110
  Transmission Date: 20120608
  Serious: No
  Sender: FDA-Public Use
  Company Number: US-PFIZER INC-2012009180

PATIENT
  Age: 41 Year
  Sex: Male
  Weight: 94.3 kg

DRUGS (1)
  1. IBUPROFEN [Suspect]
     Indication: MYALGIA
     Dosage: UNK
     Dates: start: 20120101

REACTIONS (1)
  - DRUG INEFFECTIVE [None]
